FAERS Safety Report 24282662 (Version 1)
Quarter: 2024Q3

REPORT INFORMATION
  Report Type: Other
  Country: US (occurrence: US)
  Receive Date: 20240904
  Receipt Date: 20240904
  Transmission Date: 20241016
  Serious: Yes (Life-Threatening, Hospitalization, Other)
  Sender: WES PHARMA
  Company Number: US-WES Pharma Inc-2161158

PATIENT
  Age: 49 Year
  Sex: Female

DRUGS (5)
  1. ACETAMINOPHEN\OXYCODONE HYDROCHLORIDE [Suspect]
     Active Substance: ACETAMINOPHEN\OXYCODONE HYDROCHLORIDE
     Indication: Product used for unknown indication
     Route: 048
  2. OXYCONTIN [Suspect]
     Active Substance: OXYCODONE HYDROCHLORIDE
     Route: 065
  3. ALCOHOL [Suspect]
     Active Substance: ALCOHOL
     Route: 065
  4. HYDROCHLOROTHIAZIDE [Suspect]
     Active Substance: HYDROCHLOROTHIAZIDE
     Route: 065
  5. ZOLPIDEM [Suspect]
     Active Substance: ZOLPIDEM TARTRATE
     Route: 065

REACTIONS (21)
  - Multiple organ dysfunction syndrome [Unknown]
  - Intentional overdose [Unknown]
  - Hypotension [Unknown]
  - Tachycardia [Unknown]
  - Hepatic failure [Unknown]
  - International normalised ratio [Unknown]
  - Troponin increased [Unknown]
  - Retinal depigmentation [Unknown]
  - Vision blurred [Unknown]
  - Blood fibrinogen decreased [Unknown]
  - Platelet count decreased [Unknown]
  - Fibrin D dimer increased [Unknown]
  - Choroidal infarction [Unknown]
  - Retinal exudates [Unknown]
  - Retinal haemorrhage [Unknown]
  - Myocardial ischaemia [Unknown]
  - Renal failure [Unknown]
  - Pneumonia aspiration [Unknown]
  - Septic shock [Unknown]
  - Acute respiratory failure [Unknown]
  - Disseminated intravascular coagulation [Unknown]
